FAERS Safety Report 7402208-X (Version None)
Quarter: 2011Q2

REPORT INFORMATION
  Report Type: 
  Country: None (occurrence: None)
  Receive Date: 20110408
  Receipt Date: 20110331
  Transmission Date: 20111010
  Serious: Yes (Hospitalization, Other)
  Sender: FDA-Public Use
  Company Number: US-ELI_LILLY_AND_COMPANY-US201104000882

PATIENT
  Sex: Male

DRUGS (6)
  1. HUMALOG MIX 75/25 [Suspect]
     Indication: DIABETES MELLITUS
     Dosage: 32 U, EACH MORNING
  2. GLIMEPIRIDE [Concomitant]
     Indication: DIABETES MELLITUS
  3. HUMALOG MIX 75/25 [Suspect]
     Dosage: 38 U, OTHER
  4. INSULIN [Concomitant]
     Dosage: UNK, OTHER
     Dates: start: 20101001, end: 20101109
  5. HUMALOG MIX 75/25 [Suspect]
     Dosage: 32 U, EACH MORNING
  6. HUMALOG MIX 75/25 [Suspect]
     Dosage: 38 U, OTHER

REACTIONS (9)
  - WOUND DEHISCENCE [None]
  - MOBILITY DECREASED [None]
  - HYPOGLYCAEMIA [None]
  - BLOOD GLUCOSE INCREASED [None]
  - HYPOGLYCAEMIC UNCONSCIOUSNESS [None]
  - INJECTION SITE PAIN [None]
  - LIMB INJURY [None]
  - IMPAIRED HEALING [None]
  - INSOMNIA [None]
